FAERS Safety Report 8716013 (Version 3)
Quarter: 2012Q4

REPORT INFORMATION
  Report Type: 
  Country: JP (occurrence: JP)
  Receive Date: 20120809
  Receipt Date: 20121016
  Transmission Date: 20130627
  Serious: Yes (Other)
  Sender: FDA-Public Use
  Company Number: JP-ABBOTT-12P-087-0963499-00

PATIENT
  Age: 7 Year
  Sex: Male

DRUGS (9)
  1. VALPROIC ACID [Suspect]
     Indication: LENNOX-GASTAUT SYNDROME
  2. PHENOBARBITAL [Suspect]
     Indication: LENNOX-GASTAUT SYNDROME
  3. TOPIRAMATE [Suspect]
     Indication: LENNOX-GASTAUT SYNDROME
  4. CLOBAZAM [Suspect]
     Indication: LENNOX-GASTAUT SYNDROME
  5. PHENYTOIN [Suspect]
     Indication: LENNOX-GASTAUT SYNDROME
  6. CLONAZEPAM [Suspect]
     Indication: LENNOX-GASTAUT SYNDROME
  7. LAMOTRIGINE [Suspect]
     Indication: LENNOX-GASTAUT SYNDROME
  8. ETHOSUXIMIDE [Concomitant]
     Indication: LENNOX-GASTAUT SYNDROME
  9. ZONISAMIDE [Concomitant]
     Indication: LENNOX-GASTAUT SYNDROME

REACTIONS (2)
  - Atonic seizures [Recovered/Resolved]
  - Drug ineffective [Unknown]
